FAERS Safety Report 5425459-2 (Version None)
Quarter: 2007Q3

REPORT INFORMATION
  Report Type: 
  Country: None (occurrence: None)
  Receive Date: 20070824
  Receipt Date: 20070817
  Transmission Date: 20080115
  Serious: Yes (Hospitalization)
  Sender: FDA-Public Use
  Company Number: US-AMGEN-KDL238241

PATIENT
  Sex: Male

DRUGS (6)
  1. ENBREL [Suspect]
     Indication: RHEUMATOID ARTHRITIS
     Route: 058
     Dates: start: 20010806, end: 20061108
  2. ENBREL [Suspect]
     Indication: PSORIATIC ARTHROPATHY
  3. NAPROSYN [Concomitant]
     Route: 048
     Dates: start: 20060101
  4. NEXIUM [Concomitant]
     Dates: start: 20050401
  5. AVALIDE [Concomitant]
     Dates: start: 20041201
  6. INFLUENZA VACCINE [Concomitant]
     Dates: start: 20061201

REACTIONS (6)
  - CELLULITIS [None]
  - GASTROENTERITIS [None]
  - POSTOPERATIVE WOUND INFECTION [None]
  - SPINAL COLUMN STENOSIS [None]
  - STAPHYLOCOCCAL INFECTION [None]
  - SUBCUTANEOUS ABSCESS [None]
